FAERS Safety Report 23457165 (Version 1)
Quarter: 2024Q1

REPORT INFORMATION
  Report Type: Spontaneous
  Country: US (occurrence: US)
  Receive Date: 20240130
  Receipt Date: 20240130
  Transmission Date: 20240410
  Serious: Yes (Hospitalization, Other)
  Sender: FDA-Public Use
  Company Number: US-E2BLSMVVAL-SPO/USA/24/0001708

PATIENT
  Age: 75 Year
  Sex: Female

DRUGS (2)
  1. CLOZAPINE [Suspect]
     Active Substance: CLOZAPINE
     Indication: Product used for unknown indication
     Route: 048
  2. CLOZAPINE [Suspect]
     Active Substance: CLOZAPINE
     Route: 048

REACTIONS (7)
  - Hospitalisation [Unknown]
  - Failure to thrive [Unknown]
  - Catatonia [Unknown]
  - Anxiety [Unknown]
  - Appetite disorder [Unknown]
  - Bipolar disorder [Unknown]
  - Inappropriate schedule of product administration [Unknown]
